FAERS Safety Report 11059752 (Version 1)
Quarter: 2015Q2

REPORT INFORMATION
  Report Type: Spontaneous
  Country: US (occurrence: None)
  Receive Date: 20150422
  Receipt Date: 20150422
  Transmission Date: 20150821
  Serious: Yes (Other)
  Sender: FDA-Public Use
  Company Number: ADR-2015-00756

PATIENT
  Age: 59 Year
  Sex: Female

DRUGS (4)
  1. DILAUDID [Suspect]
     Active Substance: HYDROMORPHONE HYDROCHLORIDE
     Indication: PAIN
  2. COMPOUNDED BACLOFEN INTRATHECAL [Suspect]
     Active Substance: BACLOFEN
     Indication: PAIN
  3. CLONIDINE. [Suspect]
     Active Substance: CLONIDINE
  4. BUPIVACAINE INTRATHECAL [Suspect]
     Active Substance: BUPIVACAINE

REACTIONS (5)
  - Catheter site pain [None]
  - Dysgeusia [None]
  - Dizziness [None]
  - Hypoaesthesia [None]
  - Paraesthesia [None]

NARRATIVE: CASE EVENT DATE: 20150302
